FAERS Safety Report 23616491 (Version 3)
Quarter: 2024Q4

REPORT INFORMATION
  Report Type: Spontaneous
  Country: ES (occurrence: ES)
  Receive Date: 20240311
  Receipt Date: 20241111
  Transmission Date: 20250115
  Serious: No
  Sender: ACCORD
  Company Number: ES-Accord-411316

PATIENT
  Age: 64 Year
  Sex: Female
  Weight: 58.5 kg

DRUGS (2)
  1. CISPLATIN [Suspect]
     Active Substance: CISPLATIN
     Indication: Lung neoplasm malignant
     Dosage: Q3W, IV DRIP
     Route: 042
     Dates: start: 20231226
  2. ETOPOSIDE [Suspect]
     Active Substance: ETOPOSIDE
     Indication: Lung neoplasm malignant
     Dosage: Q3W
     Route: 042
     Dates: start: 20231226

REACTIONS (1)
  - Oesophagitis [Recovered/Resolved]

NARRATIVE: CASE EVENT DATE: 20240219
